FAERS Safety Report 5087101-2 (Version None)
Quarter: 2006Q3

REPORT INFORMATION
  Report Type: 
  Country: None (occurrence: None)
  Receive Date: 20060821
  Receipt Date: 20060807
  Transmission Date: 20061208
  Serious: Yes (Hospitalization)
  Sender: FDA-Public Use
  Company Number: 2006097156

PATIENT
  Age: 51 Year
  Sex: Female
  Weight: 77.7 kg

DRUGS (13)
  1. IDARUBICIN HCL [Suspect]
     Indication: ACUTE MYELOID LEUKAEMIA
     Dosage: 17.5 MG (17.5 MG, DAILY, INTERVAL: DAYS 1-3), INTRAVENOUS
     Route: 042
     Dates: start: 20060724
  2. ETOPOSIDE [Suspect]
     Indication: ACUTE MYELOID LEUKAEMIA
     Dosage: 146 MG (146 MG, DAILY, INTERVAL: DAYS 1-5), INTRAVENOUS
     Route: 042
     Dates: start: 20060724
  3. CYTARABINE [Suspect]
     Indication: ACUTE MYELOID LEUKAEMIA
     Dosage: 195 MG (195 MG, DAILY, INTERVAL: DAYS 1-5), INTRAVENOUS
     Route: 042
     Dates: start: 20060724
  4. NEUPOGEN [Suspect]
     Indication: ACUTE MYELOID LEUKAEMIA
     Dosage: 480 MCG (480 MCG, 1 IN 1 D), SUBCUTANEOUS
     Route: 058
     Dates: start: 20060730
  5. ACYCLOVIR [Concomitant]
  6. VORICONAZOLE [Concomitant]
  7. PANTOPRAZOLE SODIUM [Concomitant]
  8. ACETAMINOPHEN [Concomitant]
  9. DOCUSATE [Concomitant]
  10. POTASSIUM CHLORIDE [Concomitant]
  11. VENLAFAXINE HCL [Concomitant]
  12. OXYCODONE HCL [Concomitant]
  13. SENNA [Concomitant]

REACTIONS (2)
  - FEBRILE NEUTROPENIA [None]
  - HAEMORRHOIDS [None]
